FAERS Safety Report 10014400 (Version 2)
Quarter: 2014Q1

REPORT INFORMATION
  Report Type: Spontaneous
  Country: IT (occurrence: IT)
  Receive Date: 20140317
  Receipt Date: 20140322
  Transmission Date: 20141002
  Serious: Yes (Other)
  Sender: FDA-Public Use
  Company Number: IT-ROCHE-1365740

PATIENT
  Age: 48 Year
  Sex: 0
  Weight: 77 kg

DRUGS (4)
  1. PEGASYS [Suspect]
     Indication: ANTIVIRAL TREATMENT
     Route: 058
     Dates: start: 20131009, end: 20140225
  2. COPEGUS [Interacting]
     Indication: ANTIVIRAL TREATMENT
     Dosage: DOSE REDUSED ON 03/DEC/2013
     Route: 048
     Dates: start: 20131203
  3. COPEGUS [Interacting]
     Route: 065
     Dates: start: 20131203
  4. INCIVO [Interacting]
     Indication: ANTIVIRAL TREATMENT
     Route: 048
     Dates: start: 20131113, end: 20140204

REACTIONS (2)
  - Drug interaction [Unknown]
  - Pancytopenia [Recovered/Resolved]
